FAERS Safety Report 20951669 (Version 1)
Quarter: 2022Q2

REPORT INFORMATION
  Report Type: Spontaneous
  Country: TR (occurrence: TR)
  Receive Date: 20220613
  Receipt Date: 20220613
  Transmission Date: 20220721
  Serious: Yes (Hospitalization, Other)
  Sender: FDA-Public Use
  Company Number: TR-GRANULES-TR-2022GRALIT00131

PATIENT
  Age: 41 Year
  Sex: Male

DRUGS (1)
  1. NAPROXEN SODIUM [Suspect]
     Active Substance: NAPROXEN SODIUM
     Indication: Headache
     Dosage: SINGLE DOSE
     Route: 065

REACTIONS (2)
  - Angioedema [Recovered/Resolved]
  - Fixed eruption [Recovered/Resolved]
